FAERS Safety Report 7544872-0 (Version None)
Quarter: 2011Q2

REPORT INFORMATION
  Report Type: 
  Country: None (occurrence: None)
  Receive Date: 20110614
  Receipt Date: 20110602
  Transmission Date: 20111010
  Serious: Yes (Hospitalization)
  Sender: FDA-Public Use
  Company Number: BR-BAYER-2011-030179

PATIENT
  Sex: Female
  Weight: 1.58 kg

DRUGS (6)
  1. FRAGMIN [Concomitant]
     Dosage: UNK
     Route: 064
  2. DEXAMETHASONE [Concomitant]
     Dosage: UNK
     Route: 064
  3. INTERFERON BETA-1B [Suspect]
     Dosage: UNK
     Route: 064
     Dates: end: 20100101
  4. INTERFERON BETA-1B [Suspect]
     Dosage: UNK
     Route: 064
     Dates: end: 20100101
  5. DEXAMETHASONE [Concomitant]
     Dosage: UNK
     Route: 064
  6. FRAGMIN [Concomitant]
     Dosage: UNK
     Route: 064

REACTIONS (3)
  - NOSOCOMIAL INFECTION [None]
  - SMALL FOR DATES BABY [None]
  - PREMATURE BABY [None]
